FAERS Safety Report 5473996-7 (Version None)
Quarter: 2007Q3

REPORT INFORMATION
  Report Type: 
  Country: None (occurrence: None)
  Receive Date: 20070830
  Receipt Date: 20070518
  Transmission Date: 20080115
  Serious: Yes (Other)
  Sender: FDA-Public Use
  Company Number: 241381

PATIENT
  Age: 39 Year
  Sex: Female
  Weight: 93 kg

DRUGS (2)
  1. XOLAIR [Suspect]
     Indication: ASTHMA
     Dosage: 300 MG, 1/MONTH, SUBCUTANEOUS
     Route: 058
     Dates: start: 20060403
  2. PRILOSEC [Concomitant]

REACTIONS (2)
  - PRURITUS [None]
  - THROAT TIGHTNESS [None]
